FAERS Safety Report 4387952-3 (Version None)
Quarter: 2004Q2

REPORT INFORMATION
  Report Type: 
  Country: None (occurrence: None)
  Receive Date: 20040630
  Receipt Date: 20021115
  Transmission Date: 20050107
  Serious: Yes (Hospitalization, Other)
  Sender: FDA-Public Use
  Company Number: CA-MERCK-0211CAN00135

PATIENT
  Age: 52 Year
  Sex: Male

DRUGS (2)
  1. ATENOLOL [Suspect]
     Route: 048
     Dates: start: 20000601, end: 20000601
  2. VIOXX [Suspect]
     Indication: OSTEOARTHRITIS
     Route: 048
     Dates: start: 20000119, end: 20000101

REACTIONS (10)
  - ACUTE MYOCARDIAL INFARCTION [None]
  - BACK PAIN [None]
  - CHEST PAIN [None]
  - CORONARY ARTERY DISEASE [None]
  - CORONARY ARTERY RESTENOSIS [None]
  - CORONARY ARTERY STENOSIS [None]
  - DEPRESSION [None]
  - FATIGUE [None]
  - HYPERSENSITIVITY [None]
  - SOMNOLENCE [None]
